FAERS Safety Report 5631768-4 (Version None)
Quarter: 2008Q1

REPORT INFORMATION
  Report Type: 
  Country: None (occurrence: None)
  Receive Date: 20080219
  Receipt Date: 20080219
  Transmission Date: 20080703
  Serious: Yes (Hospitalization)
  Sender: FDA-Public Use
  Company Number: None

PATIENT
  Sex: Female
  Weight: 86.6 kg

DRUGS (8)
  1. TAXOTERE [Suspect]
     Indication: BREAST CANCER
     Dosage: 75MG/M2 Q 3 WKS IV
     Route: 042
     Dates: start: 20080205
  2. ADRIAMYCIN PFS [Suspect]
     Indication: BREAST CANCER
     Dosage: 50MG/M2 Q 3 WKS IV
     Route: 042
     Dates: start: 20080205
  3. CYTOXAN [Suspect]
     Indication: BREAST CANCER
     Dosage: 500MG/M2 IV Q 3 WKS
     Route: 042
     Dates: start: 20080205
  4. PROZAC [Concomitant]
  5. TYLENOL (CAPLET) [Concomitant]
  6. VICODIN [Concomitant]
  7. DECADRON [Concomitant]
  8. EMEND [Concomitant]

REACTIONS (5)
  - COUGH [None]
  - DYSURIA [None]
  - FLANK PAIN [None]
  - PYELONEPHRITIS [None]
  - SPUTUM DISCOLOURED [None]
